FAERS Safety Report 15378431 (Version 1)
Quarter: 2018Q3

REPORT INFORMATION
  Report Type: Spontaneous
  Country: US (occurrence: US)
  Receive Date: 20180906
  Receipt Date: 20180906
  Transmission Date: 20181010
  Serious: Yes (Hospitalization)
  Sender: FDA-Public Use
  Company Number: None

PATIENT
  Age: 82 Year
  Sex: Male

DRUGS (12)
  1. MEVACOR [Concomitant]
     Active Substance: LOVASTATIN
  2. AMARYL [Concomitant]
     Active Substance: GLIMEPIRIDE
  3. TYLENOL [Concomitant]
     Active Substance: ACETAMINOPHEN
  4. ESBRIET [Suspect]
     Active Substance: PIRFENIDONE
     Indication: IDIOPATHIC PULMONARY FIBROSIS
     Route: 048
     Dates: start: 20170124
  5. ADVAIR HFA [Concomitant]
     Active Substance: FLUTICASONE PROPIONATE\SALMETEROL XINAFOATE
  6. ELIQUIS [Concomitant]
     Active Substance: APIXABAN
  7. MULTIVITAMIN [Concomitant]
     Active Substance: VITAMINS
  8. THERAGRAN [Concomitant]
     Active Substance: VITAMINS
  9. DIAMOX SEQUE [Concomitant]
  10. ACTOS [Concomitant]
     Active Substance: PIOGLITAZONE HYDROCHLORIDE
  11. GLUCOSAMINE [Concomitant]
     Active Substance: GLUCOSAMINE
  12. MAZXIDE [Concomitant]

REACTIONS (1)
  - Dyspnoea [None]

NARRATIVE: CASE EVENT DATE: 20180805
